FAERS Safety Report 14732930 (Version 1)
Quarter: 2018Q2

REPORT INFORMATION
  Report Type: Spontaneous
  Country: FR (occurrence: FR)
  Receive Date: 20180409
  Receipt Date: 20180409
  Transmission Date: 20180711
  Serious: Yes (Hospitalization)
  Sender: FDA-Public Use
  Company Number: FR-MERCK KGAA-2045331

PATIENT
  Age: 41 Year
  Sex: Female
  Weight: 57 kg

DRUGS (2)
  1. NOVOTHYROX [Suspect]
     Active Substance: LEVOTHYROXINE SODIUM
     Indication: THYROIDECTOMY
     Route: 048
     Dates: start: 201703, end: 201709
  2. LEVOTHYROX 75 NF [Suspect]
     Active Substance: LEVOTHYROXINE SODIUM
     Route: 048
     Dates: start: 201703, end: 201709

REACTIONS (14)
  - Vision blurred [Recovering/Resolving]
  - Chest discomfort [Recovered/Resolved]
  - Weight decreased [Recovering/Resolving]
  - Lung disorder [Recovered/Resolved]
  - Decreased appetite [Recovering/Resolving]
  - Tachycardia [Recovering/Resolving]
  - Tachycardia [Recovered/Resolved]
  - Myalgia [Recovering/Resolving]
  - Fatigue [Recovering/Resolving]
  - Product formulation issue [Recovered/Resolved]
  - Vomiting [Recovering/Resolving]
  - Headache [Recovering/Resolving]
  - Amnesia [Recovering/Resolving]
  - Diffuse alopecia [Recovering/Resolving]

NARRATIVE: CASE EVENT DATE: 201703
